FAERS Safety Report 4357272-1 (Version None)
Quarter: 2004Q2

REPORT INFORMATION
  Report Type: 
  Country: None (occurrence: None)
  Receive Date: 20040507
  Receipt Date: 20040415
  Transmission Date: 20050107
  Serious: Yes (Hospitalization, Other)
  Sender: FDA-Public Use
  Company Number: US_990826198

PATIENT
  Age: 59 Year
  Sex: Male
  Weight: 98 kg

DRUGS (4)
  1. HUMALOG [Suspect]
  2. HUMALOG MIX 75/25 [Suspect]
  3. HUMULIN 70/30 [Suspect]
     Indication: DIABETES MELLITUS
  4. HUMULIN R [Suspect]
     Indication: DIABETES MELLITUS

REACTIONS (6)
  - ARTHRALGIA [None]
  - CARDIAC OPERATION [None]
  - CHOLELITHIASIS [None]
  - MUSCLE CRAMP [None]
  - PAIN IN EXTREMITY [None]
  - PHARMACEUTICAL PRODUCT COMPLAINT [None]
